FAERS Safety Report 21624598 (Version 1)
Quarter: 2022Q4

REPORT INFORMATION
  Report Type: Report from Study
  Country: US (occurrence: US)
  Receive Date: 20221121
  Receipt Date: 20221121
  Transmission Date: 20230112
  Serious: Yes (Other)
  Sender: FDA-Public Use
  Company Number: US-BRISTOL-MYERS SQUIBB COMPANY-2022-083752

PATIENT
  Age: 63 Year
  Sex: Female
  Weight: 107.95 kg

DRUGS (4)
  1. REVLIMID [Suspect]
     Active Substance: LENALIDOMIDE
     Indication: Plasma cell myeloma
     Dosage: 21 OUT OF 28 DAYS?EXPIRATION DATE: 30-SEP-2024?EXPIRATION  DATE :30-SEP-2024 FOT A3753A
     Route: 048
  2. DEXAMETHASONE [Suspect]
     Active Substance: DEXAMETHASONE
     Indication: Product used for unknown indication
     Route: 065
  3. ELIQUIS [Concomitant]
     Active Substance: APIXABAN
     Route: 065
  4. ADVIL [Concomitant]
     Active Substance: IBUPROFEN
     Route: 065

REACTIONS (4)
  - Pain [Recovering/Resolving]
  - Bone pain [Recovering/Resolving]
  - Fungal oesophagitis [Unknown]
  - Cough [Unknown]

NARRATIVE: CASE EVENT DATE: 20221001
